FAERS Safety Report 4565895-X (Version None)
Quarter: 2005Q1

REPORT INFORMATION
  Report Type: 
  Country: None (occurrence: None)
  Receive Date: 20050128
  Receipt Date: 20050119
  Transmission Date: 20050727
  Serious: Yes (Death)
  Sender: FDA-Public Use
  Company Number: 2001003411-FJ

PATIENT
  Age: 46 Year
  Sex: Male

DRUGS (5)
  1. PROGRAF [Suspect]
     Indication: LIVER TRANSPLANT
     Dates: start: 20010501
  2. CYCLOPHOSPHAMIDE [Concomitant]
  3. STEROID [Concomitant]
  4. GABEXATE MESILATE [Concomitant]
  5. PROSTAGLANDIN [Concomitant]

REACTIONS (9)
  - BRAIN DEATH [None]
  - CEREBRAL HAEMORRHAGE [None]
  - COAGULOPATHY [None]
  - COMPLICATIONS OF TRANSPLANTED LIVER [None]
  - HAEMODIALYSIS [None]
  - HYPERBILIRUBINAEMIA [None]
  - RENAL IMPAIRMENT [None]
  - RETROPERITONEAL HAEMATOMA [None]
  - THROMBOTIC MICROANGIOPATHY [None]
